FAERS Safety Report 9353546 (Version 1)
Quarter: 2013Q2

REPORT INFORMATION
  Report Type: Spontaneous
  Country: US (occurrence: None)
  Receive Date: 20130617
  Receipt Date: 20130617
  Transmission Date: 20140414
  Serious: Yes (Life-Threatening)
  Sender: FDA-Public Use
  Company Number: None

PATIENT
  Age: 48 Year
  Sex: Female
  Weight: 43.2 kg

DRUGS (1)
  1. BIFERARX [Suspect]
     Indication: ANAEMIA
     Route: 048
     Dates: start: 20130419, end: 20130428

REACTIONS (9)
  - Rash pustular [None]
  - Pruritus [None]
  - Pain [None]
  - Nausea [None]
  - Vomiting [None]
  - Vaginal discharge [None]
  - Pigmentation disorder [None]
  - Pulmonary mass [None]
  - Faeces discoloured [None]
